FAERS Safety Report 15996525 (Version 1)
Quarter: 2019Q1

REPORT INFORMATION
  Report Type: Spontaneous
  Country: FR (occurrence: FR)
  Receive Date: 20190222
  Receipt Date: 20190222
  Transmission Date: 20190418
  Serious: Yes (Other)
  Sender: FDA-Public Use
  Company Number: FR-VERTEX PHARMACEUTICALS-2019-001516

PATIENT
  Age: 46 Year

DRUGS (2)
  1. ORKAMBI [Suspect]
     Active Substance: IVACAFTOR\LUMACAFTOR
     Indication: CYSTIC FIBROSIS
     Dosage: UNK
     Route: 048
     Dates: start: 2017
  2. INSULIN GLARGINE [Concomitant]
     Active Substance: INSULIN GLARGINE
     Dosage: 10 INTERNATIONAL UNIT, QD (BOLUS)
     Route: 051

REACTIONS (5)
  - Lung disorder [Unknown]
  - Bacterial disease carrier [Unknown]
  - Weight decreased [Unknown]
  - Osteopenia [Unknown]
  - Pancreatic failure [Unknown]

NARRATIVE: CASE EVENT DATE: 201707
